FAERS Safety Report 8822829 (Version 2)
Quarter: 2012Q4

REPORT INFORMATION
  Report Type: 
  Country: JP (occurrence: JP)
  Receive Date: 20121003
  Receipt Date: 20121018
  Transmission Date: 20130627
  Serious: Yes (Life-Threatening, Other)
  Sender: FDA-Public Use
  Company Number: JP-009507513-1209JPN011152

PATIENT
  Age: 32 Year
  Sex: Female

DRUGS (3)
  1. REFLEX [Suspect]
     Dosage: 15 mg, UNK
     Route: 048
  2. SEROQUEL [Suspect]
     Dosage: 25 mg, UNK
     Route: 048
  3. ROHYPNOL [Suspect]
     Dosage: 2 mg, UNK
     Route: 048

REACTIONS (1)
  - Cardiac arrest [Unknown]
